FAERS Safety Report 21719898 (Version 1)
Quarter: 2022Q4

REPORT INFORMATION
  Report Type: Other
  Country: US (occurrence: US)
  Receive Date: 20221213
  Receipt Date: 20221213
  Transmission Date: 20230112
  Serious: Yes (Life-Threatening, Hospitalization, Other)
  Sender: FDA-Public Use
  Company Number: US-HLS-202104465

PATIENT
  Age: 46 Year
  Sex: Female

DRUGS (5)
  1. CLOZAPINE [Suspect]
     Active Substance: CLOZAPINE
     Indication: Schizoaffective disorder
     Dosage: 300 MG DAILY, SINCE MORE THAN 10 YEARS.
     Route: 065
  2. RISPERIDONE [Suspect]
     Active Substance: RISPERIDONE
     Indication: Schizoaffective disorder
     Dosage: 4 MG TWICE DAILY
     Route: 065
  3. DIVALPROEX SODIUM [Concomitant]
     Active Substance: DIVALPROEX SODIUM
     Dosage: UNKNOWN
     Route: 065
  4. ESCITALOPRAM [Concomitant]
     Active Substance: ESCITALOPRAM OXALATE
     Dosage: UNKNOWN
     Route: 065
  5. LITHIUM [Concomitant]
     Active Substance: LITHIUM
     Dosage: UNKNOWN
     Route: 065

REACTIONS (21)
  - Mental status changes [Unknown]
  - Atelectasis [Unknown]
  - Autonomic nervous system imbalance [Unknown]
  - COVID-19 [Unknown]
  - Blood creatine phosphokinase increased [Recovering/Resolving]
  - Blood creatinine increased [Unknown]
  - Delirium [Recovering/Resolving]
  - Encephalopathy [Unknown]
  - Pyrexia [Recovered/Resolved]
  - Head injury [Unknown]
  - Hyperchloraemia [Unknown]
  - Hypernatraemia [Unknown]
  - Hypotension [Unknown]
  - Mania [Unknown]
  - Staphylococcal sepsis [Unknown]
  - Neuroleptic malignant syndrome [Unknown]
  - Hypophagia [Unknown]
  - Palpitations [Unknown]
  - Rhabdomyolysis [Unknown]
  - Tachycardia [Recovered/Resolved]
  - White blood cell count increased [Unknown]
